FAERS Safety Report 10191549 (Version 1)
Quarter: 2014Q2

REPORT INFORMATION
  Report Type: Spontaneous
  Country: FR (occurrence: FR)
  Receive Date: 20140523
  Receipt Date: 20140523
  Transmission Date: 20141212
  Serious: Yes (Hospitalization)
  Sender: FDA-Public Use
  Company Number: FR-TEVA-482082ISR

PATIENT
  Age: 76 Year
  Sex: Male

DRUGS (3)
  1. CARBIDOPA LEVODOPA [Suspect]
     Indication: PARKINSON^S DISEASE
     Route: 048
     Dates: start: 2003, end: 20130201
  2. CORVASAL [Suspect]
     Route: 048
     Dates: end: 20130202
  3. SERESTA [Suspect]
     Route: 048
     Dates: end: 20130202

REACTIONS (5)
  - Rhabdomyolysis [Recovering/Resolving]
  - Renal failure [Recovering/Resolving]
  - General physical health deterioration [Unknown]
  - Vomiting [Unknown]
  - Pneumonia aspiration [Unknown]
